FAERS Safety Report 6228209-5 (Version None)
Quarter: 2009Q2

REPORT INFORMATION
  Report Type: 
  Country: None (occurrence: None)
  Receive Date: 20090612
  Receipt Date: 20090604
  Transmission Date: 20091009
  Serious: Yes (Hospitalization)
  Sender: FDA-Public Use
  Company Number: ES-BIOGENIDEC-2009BI017059

PATIENT
  Age: 35 Year
  Sex: Female

DRUGS (3)
  1. NATALIZUMAB [Suspect]
     Indication: MULTIPLE SCLEROSIS
     Route: 042
     Dates: start: 20060925
  2. BROMAZEPAM [Concomitant]
     Route: 048
     Dates: start: 20090525
  3. FLUOXETINE HCL [Concomitant]
     Route: 048
     Dates: start: 20090525

REACTIONS (1)
  - ANXIETY [None]
